FAERS Safety Report 6510498-0 (Version None)
Quarter: 2009Q4

REPORT INFORMATION
  Report Type: 
  Country: None (occurrence: None)
  Receive Date: 20091221
  Receipt Date: 20091221
  Transmission Date: 20100525
  Serious: Yes (Life-Threatening, Other)
  Sender: FDA-Public Use
  Company Number: None

PATIENT
  Age: 11 Year
  Sex: Female
  Weight: 44.4525 kg

DRUGS (2)
  1. CITALOPRAM HYDROBROMIDE [Suspect]
     Indication: ANXIETY
     Dosage: 10 MG DAILY PO
     Route: 048
     Dates: start: 20091202, end: 20091217
  2. CITALOPRAM HYDROBROMIDE [Suspect]
     Indication: HYPERVIGILANCE
     Dosage: 10 MG DAILY PO
     Route: 048
     Dates: start: 20091202, end: 20091217

REACTIONS (1)
  - PYROMANIA [None]
